FAERS Safety Report 8206187-7 (Version None)
Quarter: 2012Q1

REPORT INFORMATION
  Report Type: 
  Country: None (occurrence: None)
  Receive Date: 20120313
  Receipt Date: 20111021
  Transmission Date: 20120608
  Serious: Yes (Other)
  Sender: FDA-Public Use
  Company Number: PHHY2011US61643

PATIENT
  Sex: Female
  Weight: 110.66 kg

DRUGS (4)
  1. GLEEVEC [Suspect]
     Dosage: 400 MG, DAILY
     Route: 048
  2. ATENOLOL [Concomitant]
  3. VITAMIN B COMPLEX CAP [Concomitant]
  4. GLEEVEC [Suspect]
     Indication: CHRONIC MYELOID LEUKAEMIA
     Dosage: 400 MG, DAILY
     Route: 048
     Dates: start: 20110707

REACTIONS (10)
  - CHROMATURIA [None]
  - LIVER DISORDER [None]
  - MUSCLE SPASMS [None]
  - JOINT SWELLING [None]
  - VISION BLURRED [None]
  - DIPLOPIA [None]
  - MYALGIA [None]
  - PERIORBITAL OEDEMA [None]
  - CONSTIPATION [None]
  - DIARRHOEA [None]
